FAERS Safety Report 10080806 (Version 1)
Quarter: 2014Q2

REPORT INFORMATION
  Report Type: Report from Study
  Country: CA (occurrence: CA)
  Receive Date: 20140416
  Receipt Date: 20140416
  Transmission Date: 20141212
  Serious: Yes (Hospitalization)
  Sender: FDA-Public Use
  Company Number: CA-JNJFOC-20140407339

PATIENT
  Age: 23 Year
  Sex: Male
  Weight: 59.5 kg

DRUGS (2)
  1. REMICADE [Suspect]
     Indication: CROHN^S DISEASE
     Dosage: AT WEEK 6 AND ONCE EVERY 8 WEEKS
     Route: 042
     Dates: start: 20140214
  2. REMICADE [Suspect]
     Indication: CROHN^S DISEASE
     Route: 042

REACTIONS (2)
  - Stoma site abscess [Not Recovered/Not Resolved]
  - Enterostomy [Unknown]
